FAERS Safety Report 12549317 (Version 1)
Quarter: 2016Q3

REPORT INFORMATION
  Report Type: Spontaneous
  Country: DE (occurrence: DE)
  Receive Date: 20160712
  Receipt Date: 20160712
  Transmission Date: 20161109
  Serious: Yes (Other)
  Sender: FDA-Public Use
  Company Number: DE-BAYER-2016-132195

PATIENT
  Age: 70 Year
  Sex: Male

DRUGS (1)
  1. GADOVIST [Suspect]
     Active Substance: GADOBUTROL
     Indication: BRAIN INJURY
     Dosage: UNK UNK, ONCE
     Route: 042
     Dates: start: 201506, end: 201506

REACTIONS (3)
  - Paraesthesia [None]
  - Nephrogenic systemic fibrosis [None]
  - Glomerular filtration rate decreased [None]

NARRATIVE: CASE EVENT DATE: 201506
